FAERS Safety Report 16797581 (Version 5)
Quarter: 2019Q4

REPORT INFORMATION
  Report Type: Report from Study
  Country: US (occurrence: US)
  Receive Date: 20190912
  Receipt Date: 20191114
  Transmission Date: 20200122
  Serious: Yes (Hospitalization, Other)
  Sender: FDA-Public Use
  Company Number: US-ALEXION PHARMACEUTICALS INC.-A201913724

PATIENT
  Sex: Female

DRUGS (4)
  1. GABAPENTIN. [Suspect]
     Active Substance: GABAPENTIN
     Indication: PROCEDURAL PAIN
     Dosage: UNK
     Route: 065
  2. PREDNISONE. [Suspect]
     Active Substance: PREDNISONE
     Indication: PRODUCT USED FOR UNKNOWN INDICATION
     Dosage: UNK
     Route: 065
  3. SOLIRIS [Suspect]
     Active Substance: ECULIZUMAB
     Indication: MYASTHENIA GRAVIS
     Dosage: 1200 MG, Q2W
     Route: 042
  4. GABAPENTIN. [Suspect]
     Active Substance: GABAPENTIN
     Indication: NERVE INJURY
     Dosage: 3 MG, UNK
     Route: 065

REACTIONS (21)
  - Hypoaesthesia [Not Recovered/Not Resolved]
  - Cataract [Unknown]
  - Nerve injury [Recovered/Resolved]
  - Pain [Recovering/Resolving]
  - Malaise [Unknown]
  - Feeling abnormal [Unknown]
  - Chills [Recovering/Resolving]
  - Headache [Recovering/Resolving]
  - Pain in extremity [Not Recovered/Not Resolved]
  - Fatigue [Unknown]
  - Ear pain [Recovered/Resolved]
  - Neuralgia [Unknown]
  - Joint swelling [Recovering/Resolving]
  - Back pain [Unknown]
  - Calcium deficiency [Unknown]
  - Peripheral swelling [Recovering/Resolving]
  - Mental fatigue [Unknown]
  - Influenza like illness [Unknown]
  - Spinal operation [Unknown]
  - Procedural pain [Recovering/Resolving]
  - Musculoskeletal discomfort [Unknown]

NARRATIVE: CASE EVENT DATE: 20190830
